FAERS Safety Report 6678982-7 (Version None)
Quarter: 2010Q2

REPORT INFORMATION
  Report Type: 
  Country: None (occurrence: None)
  Receive Date: 20100413
  Receipt Date: 20100406
  Transmission Date: 20101027
  Serious: Yes (Hospitalization)
  Sender: FDA-Public Use
  Company Number: FR-ASTRAZENECA-2010SE15181

PATIENT
  Age: 63 Year
  Sex: Female

DRUGS (14)
  1. NEXIUM [Suspect]
     Route: 048
     Dates: start: 20100125, end: 20100322
  2. NORSET [Suspect]
     Route: 048
     Dates: end: 20100319
  3. NEORAL [Suspect]
     Route: 048
     Dates: end: 20100301
  4. LEXOMIL ROCHE [Suspect]
     Route: 048
  5. CLAMOXYL [Suspect]
     Route: 048
     Dates: start: 20100129, end: 20100131
  6. OFLOCET [Suspect]
     Route: 048
     Dates: start: 20100101
  7. FELODIPINE [Concomitant]
     Route: 048
  8. COZAAR [Concomitant]
  9. CACIT [Concomitant]
  10. LASIX [Concomitant]
  11. TAHOR [Concomitant]
  12. PLAVIX [Concomitant]
  13. KARDEGIC [Concomitant]
  14. CELECTOL [Concomitant]

REACTIONS (1)
  - COLITIS COLLAGENOUS [None]
